FAERS Safety Report 5223601-X (Version None)
Quarter: 2007Q1

REPORT INFORMATION
  Report Type: 
  Country: None (occurrence: None)
  Receive Date: 20070125
  Receipt Date: 20070115
  Transmission Date: 20070707
  Serious: Yes (Death, Life-Threatening, Hospitalization)
  Sender: FDA-Public Use
  Company Number: 2007SP000000

PATIENT
  Age: 75 Year
  Sex: Male

DRUGS (2)
  1. TEMODAL [Suspect]
     Indication: GLIOBLASTOMA
     Dosage: 265 MG; QD; PO
     Route: 048
     Dates: start: 20060927, end: 20061212
  2. FORTECORTIN (DEXAMETHASONE) [Suspect]
     Indication: BRAIN OEDEMA
     Dosage: 6 MG; QD; PO
     Route: 048
     Dates: start: 20060927, end: 20061212

REACTIONS (2)
  - COMA [None]
  - SEPTIC SHOCK [None]
